FAERS Safety Report 10552655 (Version 2)
Quarter: 2014Q4

REPORT INFORMATION
  Report Type: Spontaneous
  Country: CA (occurrence: CA)
  Receive Date: 20141029
  Receipt Date: 20141029
  Transmission Date: 20150529
  Serious: Yes (Death, Other)
  Sender: FDA-Public Use
  Company Number: CA-GLAXOSMITHKLINE-A1055229A

PATIENT
  Age: 57 Year
  Sex: Female

DRUGS (1)
  1. TAFINLAR [Suspect]
     Active Substance: DABRAFENIB MESYLATE
     Indication: METASTATIC MALIGNANT MELANOMA
     Dosage: 300 MG, QD
     Route: 065

REACTIONS (6)
  - Death [Fatal]
  - Ill-defined disorder [Unknown]
  - Chills [Unknown]
  - Vomiting [Unknown]
  - Pain [Unknown]
  - Cow^s milk intolerance [Unknown]

NARRATIVE: CASE EVENT DATE: 20140103
